FAERS Safety Report 10632817 (Version 2)
Quarter: 2015Q1

REPORT INFORMATION
  Report Type: Spontaneous
  Country: US (occurrence: US)
  Receive Date: 20141205
  Receipt Date: 20150123
  Transmission Date: 20150720
  Serious: Yes (Disabling)
  Sender: FDA-Public Use
  Company Number: US-BRISTOL-MYERS SQUIBB COMPANY-21610910

PATIENT
  Age: 75 Year
  Sex: Male

DRUGS (3)
  1. PROCRIT [Concomitant]
     Active Substance: ERYTHROPOIETIN
  2. SPRYCEL [Suspect]
     Active Substance: DASATINIB
     Indication: CHRONIC MYELOID LEUKAEMIA
     Dosage: 100 MG, QD
     Route: 048
     Dates: start: 20110305, end: 20141218
  3. SPRYCEL [Suspect]
     Active Substance: DASATINIB

REACTIONS (2)
  - Diarrhoea [Not Recovered/Not Resolved]
  - Vomiting [Unknown]

NARRATIVE: CASE EVENT DATE: 20141114
